FAERS Safety Report 17872879 (Version 3)
Quarter: 2020Q3

REPORT INFORMATION
  Report Type: Report from Study
  Country: AR (occurrence: AR)
  Receive Date: 20200608
  Receipt Date: 20200805
  Transmission Date: 20201103
  Serious: Yes (Death, Hospitalization, Other)
  Sender: FDA-Public Use
  Company Number: AR-INCYTE CORPORATION-2020IN005171

PATIENT

DRUGS (3)
  1. JAKAVI [Suspect]
     Active Substance: RUXOLITINIB
     Indication: MYELOFIBROSIS
     Dosage: 30 MG, QD
     Route: 048
     Dates: start: 20170601
  2. TACROLIMUS. [Suspect]
     Active Substance: TACROLIMUS
     Indication: PRODUCT USED FOR UNKNOWN INDICATION
     Dosage: UNK
     Route: 065
     Dates: end: 20200612
  3. JAKAVI [Suspect]
     Active Substance: RUXOLITINIB
     Dosage: 30 MG, QD
     Route: 048
     Dates: start: 201810, end: 20200415

REACTIONS (9)
  - Posterior reversible encephalopathy syndrome [Recovered/Resolved]
  - Graft versus host disease in skin [Recovered/Resolved]
  - Device related infection [Recovered/Resolved]
  - Hepatic fibrosis [Unknown]
  - Cytomegalovirus infection reactivation [Recovered/Resolved]
  - Death [Fatal]
  - Hepatic cirrhosis [Unknown]
  - Sepsis [Recovered/Resolved]
  - Bacillus bacteraemia [Recovered/Resolved]

NARRATIVE: CASE EVENT DATE: 20200504
